FAERS Safety Report 18193790 (Version 5)
Quarter: 2023Q1

REPORT INFORMATION
  Report Type: Spontaneous
  Country: CA (occurrence: None)
  Receive Date: 20200825
  Receipt Date: 20230123
  Transmission Date: 20230418
  Serious: Yes (Death, Hospitalization, Other)
  Sender: FDA-Public Use
  Company Number: 2020SF06056

PATIENT
  Age: 54 Year
  Sex: Male

DRUGS (58)
  1. QUETIAPINE FUMARATE [Suspect]
     Active Substance: QUETIAPINE FUMARATE
     Indication: Bipolar disorder
     Dosage: UNKNOWN
     Route: 048
  2. QUETIAPINE FUMARATE [Suspect]
     Active Substance: QUETIAPINE FUMARATE
     Indication: Product used for unknown indication
     Dosage: UNKNOWN
     Route: 048
  3. QUETIAPINE FUMARATE [Suspect]
     Active Substance: QUETIAPINE FUMARATE
     Indication: Bipolar disorder
     Dosage: UNKNOWN
     Route: 048
  4. QUETIAPINE FUMARATE [Suspect]
     Active Substance: QUETIAPINE FUMARATE
     Indication: Product used for unknown indication
     Dosage: UNKNOWN
     Route: 048
  5. ATAZANAVIR SULFATE [Suspect]
     Active Substance: ATAZANAVIR SULFATE
     Indication: HIV infection
     Dosage: UNKNOWN
     Route: 005
  6. ATAZANAVIR SULFATE [Suspect]
     Active Substance: ATAZANAVIR SULFATE
     Indication: Product used for unknown indication
     Dosage: UNKNOWN
     Route: 005
  7. BUPROPION HYDROCHLORIDE [Suspect]
     Active Substance: BUPROPION HYDROCHLORIDE
     Indication: Bipolar disorder
     Dosage: UNKNOWN
     Route: 065
  8. BUPROPION HYDROCHLORIDE [Suspect]
     Active Substance: BUPROPION HYDROCHLORIDE
     Indication: Product used for unknown indication
     Dosage: UNKNOWN
     Route: 065
  9. BUPROPION HYDROCHLORIDE [Suspect]
     Active Substance: BUPROPION HYDROCHLORIDE
     Indication: Bipolar disorder
     Dosage: UNKNOWN
     Route: 065
  10. BUPROPION HYDROCHLORIDE [Suspect]
     Active Substance: BUPROPION HYDROCHLORIDE
     Indication: Product used for unknown indication
     Dosage: UNKNOWN
     Route: 065
  11. CLONAZEPAM [Suspect]
     Active Substance: CLONAZEPAM
     Indication: Bipolar disorder
     Dosage: UNKNOWN
     Route: 065
  12. CLONAZEPAM [Suspect]
     Active Substance: CLONAZEPAM
     Indication: Product used for unknown indication
     Dosage: UNKNOWN
     Route: 065
  13. ISENTRESS [Suspect]
     Active Substance: RALTEGRAVIR POTASSIUM
     Indication: HIV infection
     Route: 048
  14. ISENTRESS [Suspect]
     Active Substance: RALTEGRAVIR POTASSIUM
     Indication: Product used for unknown indication
     Route: 048
  15. KALETRA [Suspect]
     Active Substance: LOPINAVIR\RITONAVIR
     Indication: Product used for unknown indication
     Dosage: UNKNOWN
     Route: 048
  16. LAMIVUDINE [Suspect]
     Active Substance: LAMIVUDINE
     Indication: HIV infection
     Dosage: UNKNOWN
     Route: 005
  17. LAMIVUDINE [Suspect]
     Active Substance: LAMIVUDINE
     Indication: Product used for unknown indication
     Dosage: UNKNOWN
     Route: 005
  18. SERTRALINE [Suspect]
     Active Substance: SERTRALINE HYDROCHLORIDE
     Indication: Bipolar disorder
     Dosage: UNKNOWN
     Route: 065
  19. SERTRALINE [Suspect]
     Active Substance: SERTRALINE HYDROCHLORIDE
     Indication: Product used for unknown indication
     Dosage: UNKNOWN
     Route: 065
  20. VALPROIC ACID [Suspect]
     Active Substance: VALPROIC ACID
     Indication: Bipolar disorder
     Dosage: UNKNOWN
     Route: 065
  21. VALPROIC ACID [Suspect]
     Active Substance: VALPROIC ACID
     Indication: Product used for unknown indication
     Dosage: UNKNOWN
     Route: 065
  22. ZOPICLONE [Suspect]
     Active Substance: ZOPICLONE
     Indication: Bipolar disorder
     Dosage: UNKNOWN
     Route: 048
  23. ZOPICLONE [Suspect]
     Active Substance: ZOPICLONE
     Indication: Product used for unknown indication
     Dosage: UNKNOWN
     Route: 048
  24. SUSTIVA [Suspect]
     Active Substance: EFAVIRENZ
     Indication: Product used for unknown indication
     Route: 065
  25. RALTEGRAVIR POTASSIUM [Suspect]
     Active Substance: RALTEGRAVIR POTASSIUM
     Indication: HIV infection
     Route: 048
  26. RALTEGRAVIR POTASSIUM [Suspect]
     Active Substance: RALTEGRAVIR POTASSIUM
     Indication: Product used for unknown indication
     Route: 048
  27. SERTRALINE HYDROCHLORIDE [Suspect]
     Active Substance: SERTRALINE HYDROCHLORIDE
     Indication: Bipolar disorder
     Route: 065
  28. SERTRALINE HYDROCHLORIDE [Suspect]
     Active Substance: SERTRALINE HYDROCHLORIDE
     Indication: Product used for unknown indication
     Route: 065
  29. ENFUVIRTIDE [Concomitant]
     Active Substance: ENFUVIRTIDE
     Indication: HIV infection
     Route: 058
  30. ENFUVIRTIDE [Concomitant]
     Active Substance: ENFUVIRTIDE
     Indication: Product used for unknown indication
     Dosage: UNKNOWN
     Route: 065
  31. ATAZANAVIR [Suspect]
     Active Substance: ATAZANAVIR
     Indication: HIV infection
     Dosage: UNKNOWN
     Route: 005
  32. ATAZANAVIR [Suspect]
     Active Substance: ATAZANAVIR
     Indication: Product used for unknown indication
     Dosage: UNKNOWN
     Route: 005
  33. ATAZANAVIR [Suspect]
     Active Substance: ATAZANAVIR
     Indication: HIV infection
     Dosage: UNKNOWN
     Route: 048
  34. ATAZANAVIR [Suspect]
     Active Substance: ATAZANAVIR
     Indication: Product used for unknown indication
     Dosage: UNKNOWN
     Route: 048
  35. ATAZANAVIR [Suspect]
     Active Substance: ATAZANAVIR
     Indication: HIV infection
     Dosage: UNKNOWN
     Route: 065
  36. ATAZANAVIR [Suspect]
     Active Substance: ATAZANAVIR
     Indication: Product used for unknown indication
     Dosage: UNKNOWN
     Route: 065
  37. EFAVIRENZ [Suspect]
     Active Substance: EFAVIRENZ
     Indication: HIV infection
     Route: 065
  38. EFAVIRENZ [Suspect]
     Active Substance: EFAVIRENZ
     Indication: Product used for unknown indication
     Route: 065
  39. EFAVIRENZ [Suspect]
     Active Substance: EFAVIRENZ
     Indication: HIV infection
  40. EFAVIRENZ [Suspect]
     Active Substance: EFAVIRENZ
     Indication: Product used for unknown indication
  41. KALETRA [Suspect]
     Active Substance: LOPINAVIR\RITONAVIR
     Indication: Product used for unknown indication
     Dosage: UNKNOWN
     Route: 065
  42. LAMIVUDINE [Suspect]
     Active Substance: LAMIVUDINE
     Indication: HIV infection
     Dosage: UNKNOWN
     Route: 005
  43. LAMIVUDINE [Suspect]
     Active Substance: LAMIVUDINE
     Indication: Product used for unknown indication
     Dosage: UNKNOWN
     Route: 005
  44. LAMIVUDINE [Suspect]
     Active Substance: LAMIVUDINE
     Indication: HIV infection
     Dosage: UNKNOWN
     Route: 005
  45. LAMIVUDINE [Suspect]
     Active Substance: LAMIVUDINE
     Indication: Product used for unknown indication
     Dosage: UNKNOWN
     Route: 005
  46. LAMIVUDINE [Suspect]
     Active Substance: LAMIVUDINE
     Indication: HIV infection
     Dosage: UNKNOWN
     Route: 005
  47. LAMIVUDINE [Suspect]
     Active Substance: LAMIVUDINE
     Indication: Product used for unknown indication
     Dosage: UNKNOWN
     Route: 005
  48. LOPINAVIR [Concomitant]
     Active Substance: LOPINAVIR
  49. QUETIAPINE [Suspect]
     Active Substance: QUETIAPINE
     Indication: Bipolar disorder
     Route: 065
  50. QUETIAPINE [Suspect]
     Active Substance: QUETIAPINE
     Indication: Bipolar disorder
     Route: 048
  51. RALTEGRAVIR POTASSIUM [Suspect]
     Active Substance: RALTEGRAVIR POTASSIUM
     Indication: HIV infection
     Route: 048
  52. RALTEGRAVIR POTASSIUM [Suspect]
     Active Substance: RALTEGRAVIR POTASSIUM
     Indication: Product used for unknown indication
     Route: 048
  53. RALTEGRAVIR POTASSIUM [Suspect]
     Active Substance: RALTEGRAVIR POTASSIUM
     Indication: HIV infection
     Route: 048
  54. RALTEGRAVIR POTASSIUM [Suspect]
     Active Substance: RALTEGRAVIR POTASSIUM
     Indication: Product used for unknown indication
     Route: 048
  55. RALTEGRAVIR [Suspect]
     Active Substance: RALTEGRAVIR
     Indication: HIV infection
     Route: 048
  56. RALTEGRAVIR [Suspect]
     Active Substance: RALTEGRAVIR
     Indication: HIV infection
  57. ZOPICLONE [Suspect]
     Active Substance: ZOPICLONE
     Indication: Bipolar disorder
     Dosage: UNKNOWN
     Route: 048
  58. ZOPICLONE [Suspect]
     Active Substance: ZOPICLONE
     Indication: Product used for unknown indication
     Dosage: UNKNOWN
     Route: 048

REACTIONS (3)
  - Drug interaction [Fatal]
  - Depression [Fatal]
  - Loss of personal independence in daily activities [Recovered/Resolved]
